FAERS Safety Report 7673592-7 (Version None)
Quarter: 2011Q3

REPORT INFORMATION
  Report Type: 
  Country: None (occurrence: None)
  Receive Date: 20110810
  Receipt Date: 20110729
  Transmission Date: 20111222
  Serious: Yes (Hospitalization)
  Sender: FDA-Public Use
  Company Number: US-BAYER-2010-005817

PATIENT
  Sex: Female

DRUGS (6)
  1. YASMIN [Suspect]
     Indication: CONTRACEPTION
     Dosage: UNK
     Dates: start: 20060101, end: 20080101
  2. VICODIN [Concomitant]
  3. YAZ [Suspect]
     Dosage: UNK
     Dates: start: 20060101, end: 20090901
  4. YASMIN [Suspect]
     Dosage: UNK
     Dates: start: 20060101, end: 20090901
  5. YAZ [Suspect]
     Indication: CONTRACEPTION
     Dosage: UNK
     Dates: start: 20080301, end: 20090101
  6. COUGH SYRUP [Concomitant]

REACTIONS (7)
  - ORGAN FAILURE [None]
  - GALLBLADDER NON-FUNCTIONING [None]
  - CHOLECYSTITIS ACUTE [None]
  - PAIN [None]
  - EMOTIONAL DISTRESS [None]
  - CHOLELITHIASIS [None]
  - ANXIETY [None]
